FAERS Safety Report 10531304 (Version 3)
Quarter: 2015Q1

REPORT INFORMATION
  Report Type: Spontaneous
  Country: US (occurrence: US)
  Receive Date: 20141021
  Receipt Date: 20150126
  Transmission Date: 20150720
  Serious: Yes (Disabling, Other)
  Sender: FDA-Public Use
  Company Number: US-BAYER-2014-150204

PATIENT
  Age: 50 Year
  Sex: Female
  Weight: 58.96 kg

DRUGS (13)
  1. CIPRO [Suspect]
     Active Substance: CIPROFLOXACIN HYDROCHLORIDE
     Indication: URINARY TRACT INFECTION
     Dosage: 500 MG, BID
     Dates: start: 201405
  2. LASIX [Concomitant]
     Active Substance: FUROSEMIDE
     Dosage: 20 MG, QD
     Route: 048
  3. TYLENOL WITH CODEINE [Concomitant]
     Active Substance: ACETAMINOPHEN\CODEINE PHOSPHATE
     Dosage: UNK
     Route: 048
  4. PROVENTIL HFA [Concomitant]
     Active Substance: ALBUTEROL SULFATE
     Dosage: UNK UNK, PRN
  5. MAALOX ANTACID [Concomitant]
     Active Substance: ALUMINUM HYDROXIDE\DIMETHICONE\MAGNESIUM HYDROXIDE
     Dosage: 30 ML, ONCE
  6. LIDOKAIN [Concomitant]
     Active Substance: LIDOCAINE
     Dosage: 10 ML, ONCE
  7. GABAPENTIN. [Concomitant]
     Active Substance: GABAPENTIN
     Dosage: 300 MG, QD
     Route: 048
  8. OMEPRAZOLE. [Concomitant]
     Active Substance: OMEPRAZOLE
     Dosage: 40 MG, QD
     Route: 048
  9. ACETAMINOPHEN. [Concomitant]
     Active Substance: ACETAMINOPHEN
     Dosage: 500 MG, TID
     Route: 048
  10. DONNATAL [Concomitant]
     Active Substance: ATROPINE SULFATE\HYOSCYAMINE SULFATE\PHENOBARBITAL\SCOPOLAMINE HYDROBROMIDE
     Dosage: 10 ML, ONCE
  11. ADVAIR DISKUS [Concomitant]
     Active Substance: FLUTICASONE PROPIONATE\SALMETEROL XINAFOATE
     Dosage: 1 PUFF(S), BID
  12. ALBUTEROL SULFATE. [Concomitant]
     Active Substance: ALBUTEROL SULFATE
     Dosage: 2 PUFF(S), PRN
  13. CIPRO [Suspect]
     Active Substance: CIPROFLOXACIN HYDROCHLORIDE
     Indication: DENTAL CARE
     Dosage: UNK
     Dates: start: 201406

REACTIONS (31)
  - Muscular weakness [Not Recovered/Not Resolved]
  - Emotional distress [Not Recovered/Not Resolved]
  - Paraesthesia [None]
  - Muscle spasms [None]
  - Neuropathy peripheral [Not Recovered/Not Resolved]
  - Abasia [None]
  - Dyspnoea [None]
  - Bronchitis [None]
  - Motor dysfunction [Not Recovered/Not Resolved]
  - Activities of daily living impaired [None]
  - Nausea [None]
  - Walking disability [Not Recovered/Not Resolved]
  - Neuropathy peripheral [None]
  - Pain in extremity [Not Recovered/Not Resolved]
  - Arthralgia [Not Recovered/Not Resolved]
  - Pain [Not Recovered/Not Resolved]
  - Drug hypersensitivity [Not Recovered/Not Resolved]
  - Wheezing [None]
  - Dyspepsia [None]
  - Muscle spasms [Not Recovered/Not Resolved]
  - Neck pain [Not Recovered/Not Resolved]
  - Hypoaesthesia [Not Recovered/Not Resolved]
  - Musculoskeletal disorder [Not Recovered/Not Resolved]
  - Cough [None]
  - Hypoaesthesia [None]
  - Chronic obstructive pulmonary disease [None]
  - Tooth loss [Not Recovered/Not Resolved]
  - Suicidal ideation [Not Recovered/Not Resolved]
  - Alcohol poisoning [None]
  - Burning sensation [Not Recovered/Not Resolved]
  - Chest pain [None]
